FAERS Safety Report 7366203-1 (Version None)
Quarter: 2011Q1

REPORT INFORMATION
  Report Type: 
  Country: None (occurrence: None)
  Receive Date: 20110322
  Receipt Date: 20110308
  Transmission Date: 20110831
  Serious: Yes (Hospitalization)
  Sender: FDA-Public Use
  Company Number: US-JNJFOC-20091102616

PATIENT
  Sex: Male
  Weight: 62 kg

DRUGS (4)
  1. PREDNISONE [Concomitant]
  2. REMICADE [Suspect]
     Indication: CROHN'S DISEASE
     Dosage: TOTAL 6 DOSES
     Route: 042
     Dates: start: 20081113, end: 20090608
  3. CIPRO [Concomitant]
  4. CIMZIA [Concomitant]

REACTIONS (1)
  - CROHN'S DISEASE [None]
